FAERS Safety Report 8136825-9 (Version None)
Quarter: 2012Q1

REPORT INFORMATION
  Report Type: 
  Country: None (occurrence: None)
  Receive Date: 20120214
  Receipt Date: 20120206
  Transmission Date: 20120608
  Serious: Yes (Other)
  Sender: FDA-Public Use
  Company Number: US-B.I. PHARMACEUTICALS,INC./RIDGEFIELD-2012-EU-00808GD

PATIENT

DRUGS (4)
  1. HEPARIN SODIUM [Suspect]
     Indication: INTRAOPERATIVE CARE
     Dosage: 10000 U
  2. DABIGATRAN ETEXILATE [Suspect]
     Indication: ANTICOAGULANT THERAPY
     Dosage: 300 MG
     Route: 048
  3. DABIGATRAN ETEXILATE [Suspect]
     Indication: ATRIAL FIBRILLATION
  4. HEPARIN SODIUM [Suspect]
     Dosage: WEIGHT-ADJUSTED BOLUSES TO MAINTAIN ACT OF 300 TO 400 S

REACTIONS (3)
  - PERICARDIAL EFFUSION [None]
  - HAEMATOMA [None]
  - CARDIAC TAMPONADE [None]
